FAERS Safety Report 20987883 (Version 1)
Quarter: 2022Q2

REPORT INFORMATION
  Report Type: Spontaneous
  Country: US (occurrence: None)
  Receive Date: 20220620
  Receipt Date: 20220620
  Transmission Date: 20220720
  Serious: Yes (Death)
  Sender: FDA-Public Use
  Company Number: None

PATIENT
  Age: 53 Year
  Sex: Female

DRUGS (2)
  1. CAPECITABINE [Suspect]
     Active Substance: CAPECITABINE
     Indication: Breast cancer female
     Dosage: TAKE 2 TABLETS BY MOUTH TAKE ALONG WITH 2 (150MG) TABLETS TWICE DAILY ON DAYS 1-14 EVERY 21 DAY ?CYC
     Route: 048
     Dates: start: 20220201, end: 20220323
  2. PIQRAY [Concomitant]
     Active Substance: ALPELISIB

REACTIONS (1)
  - Death [None]

NARRATIVE: CASE EVENT DATE: 20220323
